FAERS Safety Report 9373294 (Version 1)
Quarter: 2013Q2

REPORT INFORMATION
  Report Type: Spontaneous
  Country: US (occurrence: US)
  Receive Date: 20130627
  Receipt Date: 20130627
  Transmission Date: 20140414
  Serious: Yes (Death)
  Sender: FDA-Public Use
  Company Number: US-GLAXOSMITHKLINE-A1028826A

PATIENT
  Age: 55 Year
  Sex: Male

DRUGS (11)
  1. VENTOLIN [Suspect]
     Indication: ASTHMA
     Route: 055
     Dates: end: 20130612
  2. PRAVASTATIN [Concomitant]
  3. JANUVIA [Concomitant]
  4. LISINOPRIL [Concomitant]
  5. METFORMIN [Concomitant]
  6. OMEGA-3 [Concomitant]
  7. LASIX [Concomitant]
  8. AMBIEN [Concomitant]
  9. CHLORPROMAZINE [Concomitant]
  10. PROPANOLOL [Concomitant]
  11. LEVEMIR [Concomitant]

REACTIONS (1)
  - Death [Fatal]
